FAERS Safety Report 18099484 (Version 9)
Quarter: 2020Q4

REPORT INFORMATION
  Report Type: Spontaneous
  Country: GB (occurrence: GB)
  Receive Date: 20200731
  Receipt Date: 20201007
  Transmission Date: 20210113
  Serious: Yes (Life-Threatening, Hospitalization, Other)
  Sender: FDA-Public Use
  Company Number: GB-MYLANLABS-2020M1067718

PATIENT
  Age: 32 Year
  Sex: Male

DRUGS (3)
  1. D-MANNOSE [DIETARY SUPPLEMENT] [Suspect]
     Active Substance: DIETARY SUPPLEMENT
     Indication: URINARY TRACT INFECTION
     Dosage: UNK
     Route: 065
  2. MODAFINIL. [Suspect]
     Active Substance: MODAFINIL
     Indication: PRODUCT USED FOR UNKNOWN INDICATION
     Dosage: ESTIMATED QUANTITY OF DRUG WAS MORE THAN 600MG
     Route: 065
  3. METHYLPHENIDATE. [Suspect]
     Active Substance: METHYLPHENIDATE
     Indication: PRODUCT USED FOR UNKNOWN INDICATION
     Dosage: UNK ESTIMATED QUANTITY OF LESS THAN 200MG
     Route: 065

REACTIONS (17)
  - Hypovolaemic shock [Recovered/Resolved]
  - Intracranial pressure increased [Unknown]
  - Hyponatraemia [Recovered/Resolved]
  - Coma scale abnormal [Unknown]
  - Intentional product use issue [Recovered/Resolved]
  - Pneumonia aspiration [Recovered/Resolved]
  - Vomiting [Recovered/Resolved]
  - Cognitive disorder [Recovered/Resolved]
  - White blood cell count increased [Recovered/Resolved]
  - Hypertonia [Recovered/Resolved]
  - Overdose [Recovered/Resolved]
  - Amnesia [Recovered/Resolved]
  - Ecchymosis [Unknown]
  - Hypoosmolar state [Recovered/Resolved]
  - Brain oedema [Recovered/Resolved]
  - Loss of consciousness [Recovered/Resolved]
  - Urine sodium increased [Recovered/Resolved]
